FAERS Safety Report 10170523 (Version 3)
Quarter: 2014Q4

REPORT INFORMATION
  Report Type: Report from Study
  Country: CN (occurrence: CN)
  Receive Date: 20140513
  Receipt Date: 20141017
  Transmission Date: 20150528
  Serious: Yes (Death, Other)
  Sender: FDA-Public Use
  Company Number: PHHY2014CN056521

PATIENT
  Age: 51 Year
  Sex: Male
  Weight: 67 kg

DRUGS (1)
  1. GLIVEC [Suspect]
     Active Substance: IMATINIB MESYLATE
     Indication: GASTROINTESTINAL STROMAL TUMOUR
     Dosage: 400 MG, QD PER DAY
     Route: 048
     Dates: start: 20121224

REACTIONS (8)
  - White blood cell count decreased [Unknown]
  - Haemorrhage intracranial [Fatal]
  - Respiratory tract haemorrhage [Fatal]
  - Bone marrow failure [Unknown]
  - Dyspnoea [Unknown]
  - Respiratory failure [Unknown]
  - Subarachnoid haemorrhage [Unknown]
  - Chest discomfort [Unknown]

NARRATIVE: CASE EVENT DATE: 201402
